FAERS Safety Report 7622328-4 (Version None)
Quarter: 2011Q3

REPORT INFORMATION
  Report Type: 
  Country: None (occurrence: None)
  Receive Date: 20110720
  Receipt Date: 20091120
  Transmission Date: 20111222
  Serious: Yes (Other)
  Sender: FDA-Public Use
  Company Number: US-BAYER-200941044NA

PATIENT
  Age: 61 Year
  Sex: Female
  Weight: 72 kg

DRUGS (10)
  1. RED BLOOD CELLS [Concomitant]
  2. PLASMA [Concomitant]
  3. TRASYLOL [Suspect]
     Indication: AORTIC SURGERY
     Dosage: LOADING DOSE - 100ML THEN 50ML/ HR
  4. TRASYLOL [Suspect]
     Indication: PRODUCT USED FOR UNKNOWN INDICATION
     Dosage: 200ML PUMP PRIME
     Dates: start: 20050105, end: 20050105
  5. CARDIZEM LA [Concomitant]
     Dosage: 180 MG, QD
     Route: 048
     Dates: start: 20050101
  6. LASIX [Concomitant]
     Dosage: 40 MG, BID
     Route: 048
     Dates: start: 20050101
  7. HYDROCHLOROTHIAZIDE [Concomitant]
     Dosage: UNK
     Dates: start: 20050101
  8. FENTANYL-100 [Concomitant]
     Dosage: UNK
     Dates: start: 20050105
  9. PLATELETS [Concomitant]
  10. PLASMA [Concomitant]

REACTIONS (12)
  - ANXIETY [None]
  - ANHEDONIA [None]
  - DISABILITY [None]
  - INJURY [None]
  - MULTI-ORGAN FAILURE [None]
  - RENAL FAILURE [None]
  - FEAR [None]
  - PAIN [None]
  - PSYCHIATRIC SYMPTOM [None]
  - RENAL INJURY [None]
  - UNEVALUABLE EVENT [None]
  - DEPRESSION [None]
